FAERS Safety Report 18071783 (Version 1)
Quarter: 2020Q3

REPORT INFORMATION
  Report Type: Spontaneous
  Country: US (occurrence: US)
  Receive Date: 20200727
  Receipt Date: 20200727
  Transmission Date: 20201103
  Serious: No
  Sender: FDA-Public Use
  Company Number: US-AMNEAL PHARMACEUTICALS-2020-AMRX-01058

PATIENT
  Age: 19 Year
  Sex: Male

DRUGS (2)
  1. ISOTRETINOIN. [Suspect]
     Active Substance: ISOTRETINOIN
     Indication: ACNE PUSTULAR
     Dosage: UNK
     Route: 065
     Dates: start: 201909, end: 2020
  2. ISOTRETINOIN. [Suspect]
     Active Substance: ISOTRETINOIN
     Dosage: UNK
     Route: 065
     Dates: start: 20200402

REACTIONS (1)
  - Rash [Unknown]

NARRATIVE: CASE EVENT DATE: 202003
